FAERS Safety Report 16808636 (Version 1)
Quarter: 2019Q3

REPORT INFORMATION
  Report Type: Spontaneous
  Country: DE (occurrence: DE)
  Receive Date: 20190916
  Receipt Date: 20190916
  Transmission Date: 20191005
  Serious: Yes (Congenital Anomaly)
  Sender: FDA-Public Use
  Company Number: DE-HIKMA PHARMACEUTICALS USA INC.-DE-H14001-19-46923

PATIENT
  Age: 8 Month
  Sex: Male
  Weight: 3.52 kg

DRUGS (4)
  1. LEVETIRACETAM. [Suspect]
     Active Substance: LEVETIRACETAM
     Indication: EPILEPSY
     Dosage: 2000 [MG/D ]/ IN GW 13: DOSAGE INCREASED TO 2X1000 MG BECAUSE OF A SEIZURE ()
     Route: 064
     Dates: start: 20151119, end: 20160828
  2. FOLIC ACID. [Concomitant]
     Active Substance: FOLIC ACID
     Indication: PROPHYLAXIS OF NEURAL TUBE DEFECT
     Dosage: DAILY DOSE: 0.4 MG MILLIGRAM(S) EVERY DAY
     Route: 064
     Dates: start: 20151209, end: 20160828
  3. MATERNA DHA(NEM) [Concomitant]
     Indication: PROPHYLAXIS OF NEURAL TUBE DEFECT
     Dosage: DAILY DOSE: 0.4 MG MILLIGRAM(S) EVERY DAY
     Route: 064
     Dates: start: 20151119, end: 20160828
  4. LEVETIRACETAM. [Suspect]
     Active Substance: LEVETIRACETAM
     Dosage: 1000 MG DAILY ()
     Route: 064

REACTIONS (3)
  - Syndactyly [Not Recovered/Not Resolved]
  - Polydactyly [Not Recovered/Not Resolved]
  - Foetal exposure during pregnancy [Unknown]

NARRATIVE: CASE EVENT DATE: 20151209
